FAERS Safety Report 15206307 (Version 1)
Quarter: 2018Q3

REPORT INFORMATION
  Report Type: Spontaneous
  Country: DE (occurrence: DE)
  Receive Date: 20180727
  Receipt Date: 20180727
  Transmission Date: 20181010
  Serious: Yes (Life-Threatening, Hospitalization, Congenital Anomaly, Other)
  Sender: FDA-Public Use
  Company Number: DE-TEVA-272922GER

PATIENT
  Age: 74 Year
  Sex: Female
  Weight: 54.4 kg

DRUGS (9)
  1. ACLASTA [Concomitant]
     Active Substance: ZOLEDRONIC ACID
     Indication: OSTEOPOROSIS
     Dosage: .0137 MILLIGRAM DAILY;
     Route: 042
     Dates: start: 201006
  2. PENTALONG [Concomitant]
     Active Substance: PENTAERYTHRITOL TETRANITRATE
     Indication: ANGINA PECTORIS
     Dosage: 80 MILLIGRAM DAILY;
     Route: 048
  3. PREDNISOLONE. [Suspect]
     Active Substance: PREDNISOLONE
     Indication: TEMPORAL ARTERITIS
     Dosage: 25 MILLIGRAM DAILY;
     Route: 048
     Dates: start: 201010, end: 20110223
  4. ENALAPRIL [Concomitant]
     Active Substance: ENALAPRIL
     Indication: HYPERTENSION
     Route: 048
  5. PANTOZOL [Concomitant]
     Active Substance: PANTOPRAZOLE SODIUM
     Indication: PROPHYLAXIS AGAINST GASTROINTESTINAL ULCER
     Dosage: 40 MILLIGRAM DAILY;
     Route: 048
  6. VERAPAMIL [Concomitant]
     Active Substance: VERAPAMIL HYDROCHLORIDE
     Indication: HYPERTENSION
     Route: 048
  7. SIMVASTATIN. [Suspect]
     Active Substance: SIMVASTATIN
     Indication: HYPERLIPIDAEMIA
     Dosage: 40 MILLIGRAM DAILY;
     Route: 048
     Dates: end: 20110223
  8. ASPIRIN. [Concomitant]
     Active Substance: ASPIRIN
     Indication: CARDIOVASCULAR EVENT PROPHYLAXIS
     Dosage: 100 MILLIGRAM DAILY;
     Route: 048
  9. CALCILAC KT [Concomitant]
     Indication: OSTEOPOROSIS
     Dosage: 2 DOSAGE FORMS DAILY; 1 DF: CALCIUM 500 MG + COLECALCIFEROL 400 IE
     Route: 048

REACTIONS (6)
  - Ageusia [Unknown]
  - Myopathy [Not Recovered/Not Resolved]
  - Visual impairment [Not Recovered/Not Resolved]
  - Visual acuity reduced [Unknown]
  - Cushing^s syndrome [Not Recovered/Not Resolved]
  - Muscle atrophy [Not Recovered/Not Resolved]

NARRATIVE: CASE EVENT DATE: 201101
